FAERS Safety Report 24129578 (Version 1)
Quarter: 2024Q3

REPORT INFORMATION
  Report Type: Spontaneous
  Country: ID (occurrence: ID)
  Receive Date: 20240724
  Receipt Date: 20240724
  Transmission Date: 20241016
  Serious: Yes (Other)
  Sender: ELI LILLY AND CO
  Company Number: ID-ELI_LILLY_AND_COMPANY-ID202407008889

PATIENT
  Age: 62 Year
  Sex: Female

DRUGS (31)
  1. ABEMACICLIB [Suspect]
     Active Substance: ABEMACICLIB
     Indication: Breast cancer
     Dosage: 100 MG, BID
     Route: 065
     Dates: start: 20231222, end: 20240205
  2. ABEMACICLIB [Suspect]
     Active Substance: ABEMACICLIB
     Dosage: 100 MG, BID
     Route: 065
     Dates: start: 20240216, end: 20240308
  3. ABEMACICLIB [Suspect]
     Active Substance: ABEMACICLIB
     Dosage: 100 MG, DAILY
     Route: 065
     Dates: start: 20240423, end: 20240514
  4. ABEMACICLIB [Suspect]
     Active Substance: ABEMACICLIB
     Dosage: 100 MG, DAILY
     Route: 065
     Dates: start: 20240528
  5. LETROZOLE [Concomitant]
     Active Substance: LETROZOLE
     Indication: Product used for unknown indication
     Dosage: 2.5 MG, DAILY
     Dates: start: 20231222
  6. URDAFALK [Concomitant]
     Indication: Product used for unknown indication
     Dosage: 250 MG, BID
     Dates: start: 20240115
  7. URDAFALK [Concomitant]
     Dosage: 250 MG, BID
     Dates: start: 20240128
  8. URDAFALK [Concomitant]
     Dosage: 250 MG, BID
     Dates: start: 20240216, end: 20240308
  9. URDAFALK [Concomitant]
     Dosage: 250 MG, BID
     Dates: start: 20240319
  10. URDAFALK [Concomitant]
     Dosage: 250 MG, BID
     Dates: start: 20240402
  11. URDAFALK [Concomitant]
     Dosage: 250 MG, BID
     Dates: start: 20240423
  12. URDAFALK [Concomitant]
     Dosage: 250 MG, BID
     Dates: start: 20240507
  13. URDAFALK [Concomitant]
     Dosage: 250 MG, BID
     Dates: start: 20240514
  14. URDAFALK [Concomitant]
     Dosage: 250 MG, BID
     Dates: start: 20240528
  15. URDAFALK [Concomitant]
     Dosage: 250 MG, BID
     Dates: start: 20240611
  16. URDAFALK [Concomitant]
     Dosage: 250 MG, BID
     Dates: start: 20240709
  17. LEUCOGEN [Concomitant]
     Active Substance: LEUCOGEN
     Indication: Product used for unknown indication
     Dosage: UNK
     Dates: start: 20231226
  18. LEUCOGEN [Concomitant]
     Active Substance: LEUCOGEN
     Dosage: UNK
     Dates: start: 20240115
  19. LEUCOGEN [Concomitant]
     Active Substance: LEUCOGEN
     Dosage: UNK
     Dates: start: 20240128
  20. LEUCOGEN [Concomitant]
     Active Substance: LEUCOGEN
     Dosage: UNK
     Dates: start: 20240205
  21. LEUCOGEN [Concomitant]
     Active Substance: LEUCOGEN
     Dosage: UNK
     Dates: start: 20240308
  22. LEUCOGEN [Concomitant]
     Active Substance: LEUCOGEN
     Dosage: UNK
     Dates: start: 20240312
  23. LEUCOGEN [Concomitant]
     Active Substance: LEUCOGEN
     Dosage: UNK
     Dates: start: 20240319
  24. LEUCOGEN [Concomitant]
     Active Substance: LEUCOGEN
     Dosage: UNK
     Dates: start: 20240402
  25. LEUCOGEN [Concomitant]
     Active Substance: LEUCOGEN
     Dosage: UNK
     Dates: start: 20240709
  26. ELTROMBOPAG [Concomitant]
     Active Substance: ELTROMBOPAG
     Indication: Product used for unknown indication
     Dosage: 25 MG, DAILY
     Dates: start: 20240308
  27. LIVERPRIME [Concomitant]
     Indication: Product used for unknown indication
     Dosage: 1 DOSAGE FORM, DAILY
     Dates: start: 20231226
  28. LIVERPRIME [Concomitant]
     Dosage: 1 DOSAGE FORM, DAILY
     Dates: start: 20240115
  29. LIVERPRIME [Concomitant]
     Dosage: 1 DOSAGE FORM, DAILY
     Dates: start: 20240128
  30. LIVERPRIME [Concomitant]
     Dosage: 1 DOSAGE FORM, DAILY
     Dates: start: 20240205
  31. LIVERPRIME [Concomitant]
     Dosage: 1 DOSAGE FORM, DAILY
     Dates: start: 20240216, end: 20240308

REACTIONS (4)
  - Drug-induced liver injury [Unknown]
  - White blood cell count decreased [Unknown]
  - Haemoglobin decreased [Unknown]
  - Platelet count decreased [Unknown]

NARRATIVE: CASE EVENT DATE: 20231222
